FAERS Safety Report 15161030 (Version 1)
Quarter: 2018Q3

REPORT INFORMATION
  Report Type: Report from Study
  Country: US (occurrence: US)
  Receive Date: 20180718
  Receipt Date: 20180718
  Transmission Date: 20181010
  Serious: Yes (Other)
  Sender: FDA-Public Use
  Company Number: US-JAZZ-2018-US-004933

PATIENT
  Age: 23 Year
  Sex: Male

DRUGS (13)
  1. ONDANSETRON HCL [Concomitant]
     Active Substance: ONDANSETRON HYDROCHLORIDE
  2. XYREM [Suspect]
     Active Substance: SODIUM OXYBATE
     Indication: CATAPLEXY
     Dosage: 3 G, BID
     Route: 048
     Dates: start: 201803, end: 2018
  3. ALEVE [Concomitant]
     Active Substance: NAPROXEN SODIUM
  4. XYREM [Suspect]
     Active Substance: SODIUM OXYBATE
     Indication: NARCOLEPSY
     Dosage: 2.25 G, BID
     Route: 048
     Dates: start: 20180320, end: 201803
  5. XYREM [Suspect]
     Active Substance: SODIUM OXYBATE
     Dosage: 3.75 G, BID
     Route: 048
     Dates: start: 2018, end: 2018
  6. XYREM [Suspect]
     Active Substance: SODIUM OXYBATE
     Dosage: 3 G, BID
     Route: 048
     Dates: start: 2018
  7. MAGNESIUM OXIDE. [Concomitant]
     Active Substance: MAGNESIUM OXIDE
  8. POTASSIUM CITRATE. [Concomitant]
     Active Substance: POTASSIUM CITRATE
  9. DEXEDRINE [Suspect]
     Active Substance: DEXTROAMPHETAMINE SULFATE
     Indication: PRODUCT USED FOR UNKNOWN INDICATION
  10. AMBIEN [Concomitant]
     Active Substance: ZOLPIDEM TARTRATE
  11. GLICLAZIDE [Concomitant]
     Active Substance: GLICLAZIDE
  12. TAMSULOSIN HCL [Concomitant]
     Active Substance: TAMSULOSIN HYDROCHLORIDE
  13. POTASSIUM [Concomitant]
     Active Substance: POTASSIUM

REACTIONS (22)
  - Psychotic disorder [Recovered/Resolved]
  - Muscle spasms [Not Recovered/Not Resolved]
  - Thirst [Not Recovered/Not Resolved]
  - Hallucination [Recovered/Resolved]
  - Coordination abnormal [Unknown]
  - Feeling abnormal [Not Recovered/Not Resolved]
  - Mania [Not Recovered/Not Resolved]
  - Dysphagia [Unknown]
  - Muscular weakness [Unknown]
  - Muscle twitching [Unknown]
  - Myalgia [Unknown]
  - Muscle rigidity [Unknown]
  - Fatigue [Not Recovered/Not Resolved]
  - Hallucination, auditory [Unknown]
  - Burning sensation [Unknown]
  - Seasonal allergy [Unknown]
  - Sensory disturbance [Recovered/Resolved]
  - Arthralgia [Unknown]
  - Headache [Not Recovered/Not Resolved]
  - Condition aggravated [Unknown]
  - Musculoskeletal stiffness [Recovering/Resolving]
  - Swelling [Unknown]

NARRATIVE: CASE EVENT DATE: 201803
